FAERS Safety Report 5907442-3 (Version None)
Quarter: 2008Q4

REPORT INFORMATION
  Report Type: 
  Country: None (occurrence: None)
  Receive Date: 20081003
  Receipt Date: 20080924
  Transmission Date: 20090506
  Serious: Yes (Other)
  Sender: FDA-Public Use
  Company Number: A0750336A

PATIENT
  Age: 33 Year
  Sex: Female

DRUGS (2)
  1. COMBIVIR [Suspect]
     Indication: VIRAL INFECTION
     Route: 048
     Dates: start: 20080812
  2. KALETRA [Concomitant]
     Indication: VIRAL INFECTION
     Route: 048
     Dates: start: 20080812

REACTIONS (2)
  - DRUG EXPOSURE DURING PREGNANCY [None]
  - PREMATURE LABOUR [None]
